FAERS Safety Report 24946470 (Version 1)
Quarter: 2025Q1

REPORT INFORMATION
  Report Type: Spontaneous
  Country: CN (occurrence: CN)
  Receive Date: 20250210
  Receipt Date: 20250210
  Transmission Date: 20250408
  Serious: Yes (Hospitalization, Other)
  Sender: ASTELLAS
  Company Number: CN-ASTELLAS-2025-AER-007618

PATIENT
  Age: 7 Month
  Sex: Male

DRUGS (4)
  1. TACROLIMUS [Suspect]
     Active Substance: TACROLIMUS
     Indication: Liver transplant
     Route: 065
  2. TACROLIMUS [Suspect]
     Active Substance: TACROLIMUS
     Route: 065
  3. PREDNISONE [Concomitant]
     Active Substance: PREDNISONE
     Indication: Liver transplant
     Route: 065
  4. PREDNISONE [Concomitant]
     Active Substance: PREDNISONE
     Route: 065

REACTIONS (2)
  - Passenger lymphocyte syndrome [Recovering/Resolving]
  - Venoocclusive liver disease [Recovering/Resolving]
